FAERS Safety Report 5481221-6 (Version None)
Quarter: 2007Q4

REPORT INFORMATION
  Report Type: 
  Country: None (occurrence: None)
  Receive Date: 20071010
  Receipt Date: 20071002
  Transmission Date: 20080405
  Serious: Yes (Hospitalization)
  Sender: FDA-Public Use
  Company Number: PHBS2007GB16559

PATIENT
  Age: 32 Year
  Sex: Female

DRUGS (8)
  1. OXYTOCIN [Suspect]
     Dosage: 5 IU, UNK
  2. BOSENTAN [Concomitant]
     Dosage: 125 MG, BID
  3. SILDENAFIL [Concomitant]
     Dosage: 25 MG, TID
  4. PROSTACYCLIN [Concomitant]
     Dosage: 5 NG/KG/MIN
     Route: 042
  5. PROSTACYCLIN [Concomitant]
     Dosage: 8 NG/KG/MIN
     Route: 042
  6. STEROIDS NOS [Concomitant]
     Route: 030
  7. DIAMORPHINE [Concomitant]
     Dosage: 400 UG, UNK
  8. LEVOBUPIVACAINE [Concomitant]

REACTIONS (2)
  - MEAN ARTERIAL PRESSURE DECREASED [None]
  - RIGHT ATRIAL PRESSURE INCREASED [None]
